FAERS Safety Report 4431797-2 (Version None)
Quarter: 2004Q3

REPORT INFORMATION
  Report Type: 
  Country: None (occurrence: None)
  Receive Date: 20040818
  Receipt Date: 20040803
  Transmission Date: 20050211
  Serious: Yes (Hospitalization)
  Sender: FDA-Public Use
  Company Number: 6009917

PATIENT
  Age: 40 Year
  Sex: Female

DRUGS (4)
  1. LEVOTHYROX 150 (150 MG, TABLETS) (LEVOTHYROXINE SODIUM) [Suspect]
     Dosage: 150 MCG (150 MCG, 1 IN 1 D) ORAL
     Route: 048
  2. THYROGEN (0,9 MG, INJECTION) (THYROTROPIN ALFA) [Suspect]
     Dosage: 0,9 MG (0,9 MG, 1 IN 1 D)
     Dates: start: 20040617, end: 20040618
  3. ZANIDIP (1 DOSAGE FORMS) (LERCANIDIPINE HYDROCHLORIDE) [Suspect]
     Dosage: (1 IN 1 D) ORAL
     Route: 048
  4. SEGLOR (1 DOSAGE FORMS, CAPSULES) (DIHYDROERGOTAMINE MESILATE) [Suspect]
     Dosage: 1 DOSAGE FORMS (1 DOSAGE FORMS, 1 IN 1 D) ORAL
     Route: 048

REACTIONS (10)
  - BACK PAIN [None]
  - CHEST PAIN [None]
  - COUGH [None]
  - DYSPNOEA [None]
  - DYSPNOEA EXERTIONAL [None]
  - HYPERVENTILATION [None]
  - HYPOCAPNIA [None]
  - HYPOXIA [None]
  - RALES [None]
  - TACHYCARDIA [None]
